FAERS Safety Report 14899003 (Version 3)
Quarter: 2018Q4

REPORT INFORMATION
  Report Type: Spontaneous
  Country: FR (occurrence: FR)
  Receive Date: 20180515
  Receipt Date: 20181024
  Transmission Date: 20190204
  Serious: Yes (Hospitalization)
  Sender: FDA-Public Use
  Company Number: FR-MERCK KGAA-2047842

PATIENT
  Age: 61 Year
  Sex: Female

DRUGS (1)
  1. EUTHYROX [Suspect]
     Active Substance: LEVOTHYROXINE SODIUM
     Indication: AUTOIMMUNE THYROIDITIS
     Dates: start: 2017

REACTIONS (14)
  - Dizziness [None]
  - Nausea [None]
  - Cognitive disorder [None]
  - Migraine [None]
  - Onychoclasis [None]
  - Malaise [None]
  - Blood thyroid stimulating hormone increased [Recovered/Resolved]
  - Alopecia [None]
  - Insomnia [None]
  - Abdominal pain upper [None]
  - Hot flush [None]
  - Cardiac failure [None]
  - Myalgia [None]
  - Abnormal behaviour [None]

NARRATIVE: CASE EVENT DATE: 2017
